FAERS Safety Report 8764045 (Version 3)
Quarter: 2012Q4

REPORT INFORMATION
  Report Type: 
  Country: CA (occurrence: CA)
  Receive Date: 20120831
  Receipt Date: 20121106
  Transmission Date: 20130627
  Serious: Yes (Death)
  Sender: FDA-Public Use
  Company Number: CA-JNJFOC-20120814065

PATIENT

DRUGS (47)
  1. DOXORUBICIN [Suspect]
     Indication: CHROMOSOME ANALYSIS ABNORMAL
     Dosage: days 0 and 1
     Route: 042
  2. DOXORUBICIN [Suspect]
     Indication: CHROMOSOME ANALYSIS ABNORMAL
     Dosage: re-induction
     Route: 042
  3. DOXORUBICIN [Suspect]
     Indication: ACUTE LYMPHOCYTIC LEUKAEMIA
     Dosage: re-induction
     Route: 042
  4. DOXORUBICIN [Suspect]
     Indication: ACUTE LYMPHOCYTIC LEUKAEMIA
     Dosage: days 0 and 1
     Route: 042
  5. DOXORUBICIN [Suspect]
     Indication: CHROMOSOME ANALYSIS ABNORMAL
     Dosage: re-induction
     Route: 042
  6. DOXORUBICIN [Suspect]
     Indication: CHROMOSOME ANALYSIS ABNORMAL
     Dosage: days 0 and 1
     Route: 042
  7. DOXORUBICIN [Suspect]
     Indication: ACUTE LYMPHOCYTIC LEUKAEMIA
     Dosage: re-induction
     Route: 042
  8. DOXORUBICIN [Suspect]
     Indication: ACUTE LYMPHOCYTIC LEUKAEMIA
     Dosage: days 0 and 1
     Route: 042
  9. IMATINIB [Suspect]
     Indication: CHROMOSOME ANALYSIS ABNORMAL
     Dosage: re-induction
     Route: 048
  10. IMATINIB [Suspect]
     Indication: CHROMOSOME ANALYSIS ABNORMAL
     Dosage: days 2-14
     Route: 048
  11. IMATINIB [Suspect]
     Indication: ACUTE LYMPHOCYTIC LEUKAEMIA
     Dosage: re-induction
     Route: 048
  12. IMATINIB [Suspect]
     Indication: ACUTE LYMPHOCYTIC LEUKAEMIA
     Dosage: days 2-14
     Route: 048
  13. PREDNISONE [Suspect]
     Indication: CHROMOSOME ANALYSIS ABNORMAL
     Dosage: re-induction
     Route: 048
  14. PREDNISONE [Suspect]
     Indication: CHROMOSOME ANALYSIS ABNORMAL
     Dosage: days 0-28
     Route: 048
  15. PREDNISONE [Suspect]
     Indication: ACUTE LYMPHOCYTIC LEUKAEMIA
     Dosage: re-induction
     Route: 048
  16. PREDNISONE [Suspect]
     Indication: ACUTE LYMPHOCYTIC LEUKAEMIA
     Dosage: days 0-28
     Route: 048
  17. VINCRISTINE [Suspect]
     Indication: CHROMOSOME ANALYSIS ABNORMAL
     Dosage: Days 0, 7, 14, 21
     Route: 042
  18. VINCRISTINE [Suspect]
     Indication: CHROMOSOME ANALYSIS ABNORMAL
     Dosage: re-induction
     Route: 042
  19. VINCRISTINE [Suspect]
     Indication: ACUTE LYMPHOCYTIC LEUKAEMIA
     Dosage: Days 0, 7, 14, 21
     Route: 042
  20. VINCRISTINE [Suspect]
     Indication: ACUTE LYMPHOCYTIC LEUKAEMIA
     Dosage: re-induction
     Route: 042
  21. METHOTREXATE [Suspect]
     Indication: CHROMOSOME ANALYSIS ABNORMAL
     Dosage: re-induction
     Route: 042
  22. METHOTREXATE [Suspect]
     Indication: CHROMOSOME ANALYSIS ABNORMAL
     Dosage: 4 g/m2 over 1 hour day 2
     Route: 042
  23. METHOTREXATE [Suspect]
     Indication: ACUTE LYMPHOCYTIC LEUKAEMIA
     Dosage: 4 g/m2 over 1 hour day 2
     Route: 042
  24. METHOTREXATE [Suspect]
     Indication: ACUTE LYMPHOCYTIC LEUKAEMIA
     Dosage: re-induction
     Route: 042
  25. ASPARAGINASE [Suspect]
     Indication: CHROMOSOME ANALYSIS ABNORMAL
     Dosage: 25000 iu/m2 day 4
     Route: 030
  26. ASPARAGINASE [Suspect]
     Indication: CHROMOSOME ANALYSIS ABNORMAL
     Dosage: re-induction
     Route: 030
  27. ASPARAGINASE [Suspect]
     Indication: ACUTE LYMPHOCYTIC LEUKAEMIA
     Dosage: re-induction
     Route: 030
  28. ASPARAGINASE [Suspect]
     Indication: ACUTE LYMPHOCYTIC LEUKAEMIA
     Dosage: 25000 iu/m2 day 4
     Route: 030
  29. CYTARABINE [Suspect]
     Indication: CHROMOSOME ANALYSIS ABNORMAL
     Dosage: days 0, 14
     Route: 037
  30. CYTARABINE [Suspect]
     Indication: CHROMOSOME ANALYSIS ABNORMAL
     Dosage: re-induction
     Route: 037
  31. CYTARABINE [Suspect]
     Indication: ACUTE LYMPHOCYTIC LEUKAEMIA
     Dosage: days 0, 14
     Route: 037
  32. CYTARABINE [Suspect]
     Indication: ACUTE LYMPHOCYTIC LEUKAEMIA
     Dosage: re-induction
     Route: 037
  33. METHOTREXATE [Suspect]
     Indication: CHROMOSOME ANALYSIS ABNORMAL
     Dosage: re-induction
     Route: 037
  34. METHOTREXATE [Suspect]
     Indication: CHROMOSOME ANALYSIS ABNORMAL
     Dosage: Days 0, 14
     Route: 037
  35. METHOTREXATE [Suspect]
     Indication: ACUTE LYMPHOCYTIC LEUKAEMIA
     Dosage: Days 0, 14
     Route: 037
  36. METHOTREXATE [Suspect]
     Indication: ACUTE LYMPHOCYTIC LEUKAEMIA
     Dosage: re-induction
     Route: 037
  37. HYDROCORTISONE [Suspect]
     Indication: CHROMOSOME ANALYSIS ABNORMAL
     Dosage: re-induction
     Route: 037
  38. HYDROCORTISONE [Suspect]
     Indication: CHROMOSOME ANALYSIS ABNORMAL
     Dosage: Days 0, 14
     Route: 037
  39. HYDROCORTISONE [Suspect]
     Indication: ACUTE LYMPHOCYTIC LEUKAEMIA
     Dosage: Days 0, 14
     Route: 037
  40. HYDROCORTISONE [Suspect]
     Indication: ACUTE LYMPHOCYTIC LEUKAEMIA
     Dosage: re-induction
     Route: 037
  41. LEUCOVORIN [Concomitant]
     Indication: CHROMOSOME ANALYSIS ABNORMAL
     Dosage: 4 g/m2 over 1 hour day 2
     Route: 065
  42. LEUCOVORIN [Concomitant]
     Indication: CHROMOSOME ANALYSIS ABNORMAL
     Dosage: re-induction
     Route: 065
  43. LEUCOVORIN [Concomitant]
     Indication: ACUTE LYMPHOCYTIC LEUKAEMIA
     Dosage: 4 g/m2 over 1 hour day 2
     Route: 065
  44. LEUCOVORIN [Concomitant]
     Indication: ACUTE LYMPHOCYTIC LEUKAEMIA
     Dosage: re-induction
     Route: 065
  45. CALCIUM AND VITAMIN D [Concomitant]
     Indication: PROPHYLAXIS
     Dosage: 4 g/m2 over 1 hour day 2
     Route: 065
  46. ALENDRONATE [Concomitant]
     Indication: PROPHYLAXIS
     Dosage: 4 g/m2 over 1 hour day 2
     Route: 065
  47. RISEDRONATE [Concomitant]
     Indication: PROPHYLAXIS
     Dosage: 4 g/m2 over 1 hour day 2
     Route: 065

REACTIONS (2)
  - Disease progression [Fatal]
  - Off label use [Unknown]
